FAERS Safety Report 5986220-3 (Version None)
Quarter: 2008Q4

REPORT INFORMATION
  Report Type: 
  Country: None (occurrence: None)
  Receive Date: 20081209
  Receipt Date: 20081204
  Transmission Date: 20090506
  Serious: Yes (Hospitalization)
  Sender: FDA-Public Use
  Company Number: US-BRISTOL-MYERS SQUIBB COMPANY-14432165

PATIENT

DRUGS (1)
  1. IXEMPRA KIT [Suspect]
     Dosage: PT HAD 3 MORE CYCLES 3 WEEKS APART.

REACTIONS (2)
  - ARRHYTHMIA [None]
  - PERICARDITIS [None]
